FAERS Safety Report 6682699-2 (Version None)
Quarter: 2010Q2

REPORT INFORMATION
  Report Type: 
  Country: None (occurrence: None)
  Receive Date: 20100413
  Receipt Date: 20100405
  Transmission Date: 20101027
  Serious: Yes (Other)
  Sender: FDA-Public Use
  Company Number: 2010SP019835

PATIENT
  Age: 44 Year
  Sex: Male

DRUGS (5)
  1. CLARITIN [Suspect]
     Indication: COUGH
     Dosage: 5 MG;Q12H;PO
     Route: 048
     Dates: start: 20100402
  2. CLARITIN [Suspect]
     Indication: RHINORRHOEA
     Dosage: 5 MG;Q12H;PO
     Route: 048
     Dates: start: 20100402
  3. CLARITIN [Suspect]
     Indication: SNEEZING
     Dosage: 5 MG;Q12H;PO
     Route: 048
     Dates: start: 20100402
  4. CLARITIN [Suspect]
     Indication: THROAT IRRITATION
     Dosage: 5 MG;Q12H;PO
     Route: 048
     Dates: start: 20100402
  5. NORVASC [Concomitant]

REACTIONS (4)
  - DRY MOUTH [None]
  - GLOSSODYNIA [None]
  - PHARYNGEAL OEDEMA [None]
  - SWOLLEN TONGUE [None]
